FAERS Safety Report 8143878-0 (Version None)
Quarter: 2012Q1

REPORT INFORMATION
  Report Type: 
  Country: None (occurrence: None)
  Receive Date: 20120214
  Receipt Date: 20120206
  Transmission Date: 20120608
  Serious: Yes (Death, Hospitalization)
  Sender: FDA-Public Use
  Company Number: 128970 - 2

PATIENT
  Age: 51 Year
  Sex: Female
  Weight: 68 kg

DRUGS (1)
  1. LEUCOVORIN CALCIUM [Suspect]
     Indication: COLORECTAL CANCER METASTATIC
     Dosage: 400MG/M2 DAY ONE EVERY 14 DAYS, IV
     Route: 042
     Dates: start: 20111125, end: 20111227

REACTIONS (11)
  - TRACHEOBRONCHITIS [None]
  - HEPATIC STEATOSIS [None]
  - STAPHYLOCOCCAL INFECTION [None]
  - METASTASES TO LYMPH NODES [None]
  - PULMONARY CONGESTION [None]
  - PULMONARY OEDEMA [None]
  - MORAXELLA INFECTION [None]
  - BRAIN OEDEMA [None]
  - BRONCHOPULMONARY ASPERGILLOSIS [None]
  - CANDIDIASIS [None]
  - CARDIOMEGALY [None]
